FAERS Safety Report 5336835-0 (Version None)
Quarter: 2007Q2

REPORT INFORMATION
  Report Type: 
  Country: None (occurrence: None)
  Receive Date: 20070524
  Receipt Date: 20070524
  Transmission Date: 20071010
  Serious: Yes (Hospitalization)
  Sender: FDA-Public Use
  Company Number: None

PATIENT
  Age: 49 Year
  Sex: Male
  Weight: 99.7913 kg

DRUGS (3)
  1. VANCOMYCIN [Suspect]
     Indication: SUBACUTE ENDOCARDITIS
     Dosage: 1.5 G IV Q 12 HRS
     Route: 042
     Dates: start: 20070126
  2. GENTAMICIN [Suspect]
     Indication: SUBACUTE ENDOCARDITIS
     Dosage: 80 MG Q 8HRS
     Dates: start: 20070129
  3. INDOMETHACIN [Suspect]
     Indication: GOUT

REACTIONS (2)
  - HAEMATURIA [None]
  - NEPHRITIS INTERSTITIAL [None]
